FAERS Safety Report 8536802-X (Version None)
Quarter: 2012Q3

REPORT INFORMATION
  Report Type: 
  Country: None (occurrence: None)
  Receive Date: 20120725
  Receipt Date: 20120718
  Transmission Date: 20120928
  Serious: Yes (Hospitalization)
  Sender: FDA-Public Use
  Company Number: FR-B.I. PHARMACEUTICALS,INC./RIDGEFIELD-2012-FF-00961FF

PATIENT
  Age: 70 Year
  Sex: Female

DRUGS (8)
  1. FLUTICASONE PROPIONATE/SALMETEROL [Concomitant]
  2. ATORVASTATIN [Concomitant]
     Dosage: 1 ANZ
  3. FOLIC ACID [Concomitant]
  4. ACETAMINOPHEN [Concomitant]
  5. PRADAXA [Suspect]
     Indication: ATRIAL FIBRILLATION
     Dosage: 220 MG
     Route: 048
  6. TIAPRIDAL [Concomitant]
     Dosage: 50 MG
  7. BISOPROLOL FUMARATE [Concomitant]
     Dosage: 25 MG
  8. NEXIUM [Concomitant]
     Dosage: 1 ANZ

REACTIONS (2)
  - FALL [None]
  - LOSS OF CONSCIOUSNESS [None]
